FAERS Safety Report 6133824-3 (Version None)
Quarter: 2009Q1

REPORT INFORMATION
  Report Type: 
  Country: None (occurrence: None)
  Receive Date: 20090326
  Receipt Date: 20090316
  Transmission Date: 20090719
  Serious: Yes (Hospitalization)
  Sender: FDA-Public Use
  Company Number: SE-PFIZER INC-2009180315

PATIENT

DRUGS (8)
  1. BLINDED *PLACEBO [Suspect]
     Indication: PROSTATE CANCER
     Dosage: UNK
     Route: 048
     Dates: start: 20090205
  2. BLINDED SUNITINIB MALATE [Suspect]
     Indication: PROSTATE CANCER
     Dosage: UNK
     Route: 048
     Dates: start: 20090205
  3. PREDNISOLONE AND PREDNISOLONE STEAGLATE [Suspect]
     Indication: PROSTATE CANCER
     Dosage: 5 MG, 2X/DAY
     Route: 048
     Dates: start: 20090205
  4. GLIBENCLAMIDE [Suspect]
     Indication: DIABETES MELLITUS
     Dosage: 3.5 MG, 2X/DAY
     Route: 048
     Dates: start: 19940101
  5. ALFUZOSIN [Concomitant]
     Indication: BENIGN PROSTATIC HYPERPLASIA
     Dosage: 10 MG, 1X/DAY
     Route: 048
  6. SIMVASTATIN [Concomitant]
     Indication: HYPERLIPIDAEMIA
     Dosage: 40 MG, 1X/DAY
     Route: 048
  7. PARACETAMOL [Concomitant]
     Indication: PAIN
     Dosage: 1000 MG, 1X/DAY
     Route: 048
     Dates: start: 20080101
  8. METOCLOPRAMIDE [Concomitant]
     Indication: NAUSEA
     Dosage: 10 MG, UNK
     Route: 048
     Dates: start: 20090301

REACTIONS (1)
  - HYPOGLYCAEMIA [None]
